FAERS Safety Report 4934196-X (Version None)
Quarter: 2006Q1

REPORT INFORMATION
  Report Type: 
  Country: None (occurrence: None)
  Receive Date: 20060303
  Receipt Date: 20060301
  Transmission Date: 20060701
  Serious: Yes (Death, Other)
  Sender: FDA-Public Use
  Company Number: 200415397BWH

PATIENT
  Age: 68 Year
  Sex: Male

DRUGS (1)
  1. AVELOX [Suspect]
     Indication: UROSEPSIS
     Dosage: 400 MG, QD, INTRAVENOUS
     Route: 042
     Dates: start: 20030207, end: 20030209

REACTIONS (7)
  - ACUTE CORONARY SYNDROME [None]
  - ARRHYTHMIA [None]
  - CARDIAC ARREST [None]
  - CONFUSIONAL STATE [None]
  - CORONARY ARTERY DISEASE [None]
  - PULSE ABSENT [None]
  - TORSADE DE POINTES [None]
